FAERS Safety Report 4667783-7 (Version None)
Quarter: 2005Q2

REPORT INFORMATION
  Report Type: 
  Country: None (occurrence: None)
  Receive Date: 20050520
  Receipt Date: 20050512
  Transmission Date: 20051028
  Serious: Yes (Hospitalization)
  Sender: FDA-Public Use
  Company Number: FR-GLAXOSMITHKLINE-B0380869A

PATIENT
  Age: 80 Year
  Sex: Male
  Weight: 74.5 kg

DRUGS (3)
  1. ONDANSETRON [Suspect]
     Route: 042
     Dates: start: 20050105, end: 20050105
  2. DETICENE [Suspect]
     Indication: CHOROID MELANOMA
     Dosage: 380MG CYCLIC
     Route: 042
     Dates: start: 20050105, end: 20050105
  3. TRANXENE [Suspect]
     Route: 048
     Dates: start: 20050105, end: 20050105

REACTIONS (3)
  - CHEST X-RAY ABNORMAL [None]
  - CREPITATIONS [None]
  - PYREXIA [None]
